FAERS Safety Report 8200467-7 (Version None)
Quarter: 2012Q1

REPORT INFORMATION
  Report Type: 
  Country: None (occurrence: None)
  Receive Date: 20120306
  Receipt Date: 20120220
  Transmission Date: 20120608
  Serious: Yes (Hospitalization, Other)
  Sender: FDA-Public Use
  Company Number: 2012-087

PATIENT
  Age: 44 Year
  Sex: Male

DRUGS (1)
  1. PRIALT [Suspect]
     Indication: PAIN
     Dosage: UNK UG, ONCE/HOUR, INTRATHECAL
     Route: 037
     Dates: start: 20120101, end: 20120220

REACTIONS (3)
  - SCREAMING [None]
  - AGGRESSION [None]
  - CRYING [None]
